FAERS Safety Report 17674174 (Version 1)
Quarter: 2020Q2

REPORT INFORMATION
  Report Type: Spontaneous
  Country: CA (occurrence: CA)
  Receive Date: 20200416
  Receipt Date: 20200416
  Transmission Date: 20200714
  Serious: Yes (Other)
  Sender: FDA-Public Use
  Company Number: CA-TEVA-2020-CA-1222015

PATIENT
  Age: 11 Year
  Sex: Male

DRUGS (8)
  1. VINCRISTINE SULFATE. [Suspect]
     Active Substance: VINCRISTINE SULFATE
     Indication: ACUTE LYMPHOCYTIC LEUKAEMIA
     Route: 042
  2. MERCAPTOPURINE. [Concomitant]
     Active Substance: MERCAPTOPURINE
  3. CYTARABINE. [Concomitant]
     Active Substance: CYTARABINE
  4. ASPARAGINASE [Concomitant]
     Active Substance: ASPARAGINASE
  5. METHOTREXATE. [Concomitant]
     Active Substance: METHOTREXATE
  6. PEGASPARAGINASE [Concomitant]
     Active Substance: PEGASPARGASE
  7. HYDROCORTISONE. [Concomitant]
     Active Substance: HYDROCORTISONE
  8. DOXORUBICIN HYDROCHLORIDE INJECTION [Concomitant]
     Active Substance: DOXORUBICIN HYDROCHLORIDE

REACTIONS (9)
  - Hypotonia [Recovered/Resolved]
  - Neuropathy peripheral [Recovered/Resolved]
  - Arthralgia [Recovered/Resolved]
  - Asthenia [Recovered/Resolved]
  - Bone pain [Recovered/Resolved]
  - Muscular weakness [Recovered/Resolved]
  - Neuralgia [Recovered/Resolved]
  - Posture abnormal [Recovered/Resolved]
  - Pain in extremity [Recovered/Resolved]
